FAERS Safety Report 13337310 (Version 4)
Quarter: 2017Q2

REPORT INFORMATION
  Report Type: Spontaneous
  Country: US (occurrence: US)
  Receive Date: 20170315
  Receipt Date: 20170505
  Transmission Date: 20170830
  Serious: Yes (Hospitalization, Other)
  Sender: FDA-Public Use
  Company Number: US-BAXTER-2017BAX011105

PATIENT
  Age: 72 Year
  Sex: Female

DRUGS (2)
  1. BOTOX [Suspect]
     Active Substance: ONABOTULINUMTOXINA
     Indication: PRODUCT USED FOR UNKNOWN INDICATION
     Route: 065
  2. DIANEAL LOW CALCIUM PERITONEAL DIALYSIS SOLUTION WITH DEXTROSE [Suspect]
     Active Substance: CALCIUM CHLORIDE\DEXTROSE\MAGNESIUM CHLORIDE\SODIUM CHLORIDE\SODIUM LACTATE
     Indication: PERITONEAL DIALYSIS
     Route: 033

REACTIONS (8)
  - Diverticulitis [Recovering/Resolving]
  - Dyspnoea [Unknown]
  - Weight decreased [Unknown]
  - Accidental overdose [Unknown]
  - Hypotension [Unknown]
  - Dysphagia [Unknown]
  - Migraine [Unknown]
  - Mass [Recovering/Resolving]

NARRATIVE: CASE EVENT DATE: 201703
